FAERS Safety Report 22177569 (Version 2)
Quarter: 2023Q2

REPORT INFORMATION
  Report Type: Spontaneous
  Country: FR (occurrence: FR)
  Receive Date: 20230405
  Receipt Date: 20230504
  Transmission Date: 20230722
  Serious: Yes (Death)
  Sender: FDA-Public Use
  Company Number: FR-AMGEN-FRASP2023058132

PATIENT
  Age: 55 Year

DRUGS (1)
  1. LUMAKRAS [Suspect]
     Active Substance: SOTORASIB
     Indication: Product used for unknown indication
     Dosage: 960 MILLIGRAM
     Route: 065
     Dates: end: 20221204

REACTIONS (2)
  - Septic shock [Fatal]
  - Cardiac failure [Fatal]
